FAERS Safety Report 21747109 (Version 1)
Quarter: 2022Q4

REPORT INFORMATION
  Report Type: Spontaneous
  Country: US (occurrence: None)
  Receive Date: 20221218
  Receipt Date: 20221218
  Transmission Date: 20230113
  Serious: Yes (Hospitalization)
  Sender: FDA-Public Use
  Company Number: None

PATIENT
  Age: 58 Year
  Sex: Female
  Weight: 78.3 kg

DRUGS (1)
  1. .DELTA.8-TETRAHYDROCANNABINOL\HERBALS [Suspect]
     Active Substance: .DELTA.8-TETRAHYDROCANNABINOL\HERBALS
     Indication: Hypersensitivity
     Dosage: OTHER QUANTITY : 0.25 TEASPOON(S);?FREQUENCY : AS NEEDED;?
     Route: 048
     Dates: start: 20221208, end: 20221208

REACTIONS (6)
  - Loss of consciousness [None]
  - Dysarthria [None]
  - Tachyphrenia [None]
  - Feeling abnormal [None]
  - Hallucination [None]
  - Muscle spasticity [None]

NARRATIVE: CASE EVENT DATE: 20221208
